FAERS Safety Report 21476117 (Version 2)
Quarter: 2022Q4

REPORT INFORMATION
  Report Type: Spontaneous
  Country: JP (occurrence: JP)
  Receive Date: 20221019
  Receipt Date: 20221116
  Transmission Date: 20230113
  Serious: Yes (Hospitalization, Other)
  Sender: FDA-Public Use
  Company Number: JP-BRISTOL-MYERS SQUIBB COMPANY-2022-122888

PATIENT
  Age: 55 Year
  Sex: Male

DRUGS (6)
  1. YERVOY [Suspect]
     Active Substance: IPILIMUMAB
     Indication: Non-small cell lung cancer recurrent
     Route: 041
     Dates: start: 20220916
  2. OPDIVO [Suspect]
     Active Substance: NIVOLUMAB
     Indication: Non-small cell lung cancer recurrent
     Route: 041
     Dates: start: 20220916
  3. CARBOPLATIN [Suspect]
     Active Substance: CARBOPLATIN
     Indication: Product used for unknown indication
     Dosage: 2 COURSES
     Route: 065
     Dates: start: 20220916, end: 20220916
  4. CARBOPLATIN [Suspect]
     Active Substance: CARBOPLATIN
     Dosage: 2 COURSES
     Route: 065
     Dates: start: 20221007, end: 20221007
  5. PACLITAXEL [Suspect]
     Active Substance: PACLITAXEL
     Indication: Product used for unknown indication
     Dosage: 2 COURSES
     Route: 065
     Dates: start: 20220916, end: 20220916
  6. PACLITAXEL [Suspect]
     Active Substance: PACLITAXEL
     Dosage: 2 COURSES
     Route: 065
     Dates: start: 20221007, end: 20221007

REACTIONS (5)
  - Decreased appetite [Unknown]
  - Diarrhoea [Recovered/Resolved]
  - Blood creatinine increased [Recovered/Resolved]
  - Anuria [Recovered/Resolved]
  - Non-small cell lung cancer [Unknown]

NARRATIVE: CASE EVENT DATE: 20220901
